FAERS Safety Report 18437818 (Version 6)
Quarter: 2021Q3

REPORT INFORMATION
  Report Type: Report from Study
  Country: BR (occurrence: BR)
  Receive Date: 20201028
  Receipt Date: 20210728
  Transmission Date: 20211014
  Serious: Yes (Other)
  Sender: FDA-Public Use
  Company Number: BR-TAKEDA-2020TUS045421

PATIENT
  Age: 72 Year
  Sex: Female
  Weight: 63 kg

DRUGS (2)
  1. VEDOLIZUMAB [Suspect]
     Active Substance: VEDOLIZUMAB
     Indication: CROHN^S DISEASE
     Dosage: 300 MILLIGRAM
     Route: 042
     Dates: start: 20181129, end: 20200212
  2. VITAMIN D [Concomitant]
     Active Substance: VITAMIN D NOS
     Dosage: 7000 INTERNATIONAL UNIT, QD

REACTIONS (6)
  - Lung neoplasm malignant [Recovering/Resolving]
  - Product dose omission issue [Unknown]
  - Asthenia [Unknown]
  - Thyroid disorder [Unknown]
  - Malaise [Unknown]
  - Hypervitaminosis D [Unknown]

NARRATIVE: CASE EVENT DATE: 20200408
